FAERS Safety Report 8252343-1 (Version None)
Quarter: 2012Q2

REPORT INFORMATION
  Report Type: 
  Country: None (occurrence: None)
  Receive Date: 20120402
  Receipt Date: 20110517
  Transmission Date: 20120825
  Serious: No
  Sender: FDA-Public Use
  Company Number: US-ABBOTT-11P-163-0804581-00

PATIENT
  Age: 64 Year
  Sex: Male
  Weight: 93.181 kg

DRUGS (4)
  1. NEBIVOLOL HYDROCHLORIDE [Concomitant]
     Indication: BLOOD PRESSURE ABNORMAL
     Dosage: DAILY DOSE:  UNKNOWN
     Route: 065
  2. AMLODIPINE BESILATE [Concomitant]
     Indication: BLOOD PRESSURE ABNORMAL
     Dosage: DAILY DOSE:  UNKNOWN
     Route: 065
  3. ASCORBIC ACID AND ERGOCALCIFEROL AND FOLIC ACID AND NICOTINAMIDE AND P [Concomitant]
     Indication: SUPPLEMENTATION THERAPY
     Dosage: DAILY DOSE:  UNKNOWN
     Route: 065
  4. TESTOSTERONE [Suspect]
     Indication: BLOOD TESTOSTERONE DECREASED
     Dosage: DAILY DOSE: 5 GRAM(S), 4 PUMPS PER DAY
     Route: 062
     Dates: start: 20100501

REACTIONS (2)
  - ERECTILE DYSFUNCTION [None]
  - BLOOD TESTOSTERONE DECREASED [None]
